FAERS Safety Report 10202986 (Version 1)
Quarter: 2014Q2

REPORT INFORMATION
  Report Type: Spontaneous
  Country: GB (occurrence: GB)
  Receive Date: 20140528
  Receipt Date: 20140528
  Transmission Date: 20141212
  Serious: Yes (Other)
  Sender: FDA-Public Use
  Company Number: PHHY2014GB064530

PATIENT
  Age: 25 Year
  Sex: Female
  Weight: 54.88 kg

DRUGS (2)
  1. BEDRANOL [Suspect]
     Indication: MIGRAINE
     Dosage: 1 DF, QD
     Route: 048
     Dates: start: 201311
  2. DEPO-PROVERA [Concomitant]

REACTIONS (2)
  - Hyperhidrosis [Not Recovered/Not Resolved]
  - Dysarthria [Not Recovered/Not Resolved]
